FAERS Safety Report 25938013 (Version 3)
Quarter: 2025Q4

REPORT INFORMATION
  Report Type: Spontaneous
  Country: US (occurrence: US)
  Receive Date: 20251018
  Receipt Date: 20251119
  Transmission Date: 20260118
  Serious: No
  Sender: TRAVERE THERAPEUTICS
  Company Number: US-TRAVERE-2025TVT01593

PATIENT
  Age: 61 Year
  Sex: Female

DRUGS (2)
  1. FILSPARI [Suspect]
     Active Substance: SPARSENTAN
     Indication: IgA nephropathy
     Dosage: DID NOT TAKE FILSPARI FOR 1 MONTH
     Route: 048
  2. FILSPARI [Suspect]
     Active Substance: SPARSENTAN
     Dosage: 3 DAYS
     Route: 048
     Dates: start: 20250901, end: 202509

REACTIONS (9)
  - Erythema [Recovered/Resolved]
  - Blister [Recovered/Resolved]
  - Liver function test increased [Unknown]
  - Back pain [None]
  - Oedema [Unknown]
  - Pruritus [Recovered/Resolved]
  - Rash [Unknown]
  - Flank pain [None]
  - Product dose omission issue [Unknown]

NARRATIVE: CASE EVENT DATE: 20250901
